FAERS Safety Report 14189655 (Version 2)
Quarter: 2018Q1

REPORT INFORMATION
  Report Type: Report from Study
  Country: DE (occurrence: DE)
  Receive Date: 20171115
  Receipt Date: 20180324
  Transmission Date: 20180508
  Serious: Yes (Death, Hospitalization, Other)
  Sender: FDA-Public Use
  Company Number: DE-ROCHE-2024551

PATIENT
  Age: 72 Year
  Sex: Male
  Weight: 89 kg

DRUGS (2)
  1. BEVACIZUMAB. [Suspect]
     Active Substance: BEVACIZUMAB
     Indication: RENAL CELL CARCINOMA
     Dosage: LAST DOSE PRIOR TO SAE: 17/DEC/2012
     Route: 042
     Dates: start: 20121203, end: 20121228
  2. INTERFERON ALFA-2A [Suspect]
     Active Substance: INTERFERON ALFA-2A
     Indication: RENAL CELL CARCINOMA
     Dosage: LAST DOSE PRIOR TO SAE: 26/DEC/2012
     Route: 058
     Dates: start: 20121203, end: 20121228

REACTIONS (16)
  - Diverticulitis [Not Recovered/Not Resolved]
  - Urinary tract infection [Unknown]
  - Large intestine perforation [Not Recovered/Not Resolved]
  - Gastrointestinal perforation [Not Recovered/Not Resolved]
  - Anaemia [Unknown]
  - Testicular pain [Unknown]
  - Groin pain [Unknown]
  - Diverticular perforation [Not Recovered/Not Resolved]
  - Thrombocytopenia [Unknown]
  - Sepsis [Fatal]
  - Pulmonary embolism [Fatal]
  - Pulmonary embolism [Fatal]
  - Bladder pain [Not Recovered/Not Resolved]
  - Peritonitis [Not Recovered/Not Resolved]
  - Fatigue [Unknown]
  - Fatigue [Unknown]

NARRATIVE: CASE EVENT DATE: 20121217
